FAERS Safety Report 19494480 (Version 1)
Quarter: 2021Q3

REPORT INFORMATION
  Report Type: Spontaneous
  Country: RU (occurrence: RU)
  Receive Date: 20210706
  Receipt Date: 20210706
  Transmission Date: 20211014
  Serious: Yes (Hospitalization)
  Sender: FDA-Public Use
  Company Number: RU-AMGEN-RUSSP2021099560

PATIENT
  Sex: Female

DRUGS (3)
  1. PARICALCITOL. [Suspect]
     Active Substance: PARICALCITOL
     Indication: HYPERPARATHYROIDISM SECONDARY
     Dosage: 15 MICROGRAM, 3 TIMES/WK
     Route: 065
  2. CINACALCET HCL [Suspect]
     Active Substance: CINACALCET HYDROCHLORIDE
     Indication: HYPERPARATHYROIDISM SECONDARY
     Dosage: 90 MILLIGRAM, QD
     Route: 065
  3. VITAMIN D [COLECALCIFEROL] [Concomitant]
     Active Substance: CHOLECALCIFEROL

REACTIONS (8)
  - Drug ineffective [Unknown]
  - Hyperparathyroidism secondary [Recovered/Resolved]
  - Malnutrition [Recovered/Resolved]
  - Body fat disorder [Recovered/Resolved]
  - Hypoparathyroidism [Recovered/Resolved]
  - Blood phosphorus increased [Recovered/Resolved]
  - Hypocalcaemia [Recovered/Resolved]
  - Thyroid mass [Recovered/Resolved]

NARRATIVE: CASE EVENT DATE: 201605
